FAERS Safety Report 4536944-X (Version None)
Quarter: 2004Q4

REPORT INFORMATION
  Report Type: 
  Country: None (occurrence: None)
  Receive Date: 20041220
  Receipt Date: 20040603
  Transmission Date: 20050328
  Serious: Yes (Death)
  Sender: FDA-Public Use
  Company Number: 139072USA

PATIENT
  Sex: Female

DRUGS (1)
  1. PURINETHOL [Suspect]
     Dates: start: 19901101, end: 19930301

REACTIONS (1)
  - WHITE BLOOD CELL COUNT DECREASED [None]
